FAERS Safety Report 11121358 (Version 1)
Quarter: 2015Q2

REPORT INFORMATION
  Report Type: Report from Study
  Country: US (occurrence: US)
  Receive Date: 20150519
  Receipt Date: 20150519
  Transmission Date: 20150821
  Serious: Yes (Other)
  Sender: FDA-Public Use
  Company Number: PHEH2015US001099

PATIENT
  Sex: Male
  Weight: 99.77 kg

DRUGS (1)
  1. GILENYA [Suspect]
     Active Substance: FINGOLIMOD HYDROCHLORIDE
     Indication: MULTIPLE SCLEROSIS
     Dosage: 0.5 MG, QD
     Route: 048
     Dates: start: 20140801

REACTIONS (8)
  - Malaise [Unknown]
  - Hernia [Unknown]
  - Immunosuppression [Unknown]
  - Prescribed underdose [Unknown]
  - Nephrolithiasis [Unknown]
  - Off label use [Unknown]
  - Cough [Unknown]
  - Nasopharyngitis [Unknown]
